FAERS Safety Report 5503492-X (Version None)
Quarter: 2007Q4

REPORT INFORMATION
  Report Type: 
  Country: None (occurrence: None)
  Receive Date: 20071029
  Receipt Date: 20071025
  Transmission Date: 20080405
  Serious: Yes (Hospitalization)
  Sender: FDA-Public Use
  Company Number: TCI2007A04490

PATIENT
  Age: 75 Year
  Sex: Female

DRUGS (9)
  1. LANSOPRAZOLE [Suspect]
     Indication: REFLUX OESOPHAGITIS
     Dosage: 15 MG (15 MG, 1 IN 1 D) PER ORAL
     Route: 048
     Dates: start: 20040101, end: 20070819
  2. WARFARIN SODIUM [Suspect]
     Dosage: PER ORAL
     Route: 048
     Dates: start: 20070713, end: 20070801
  3. EURODIN (ESTAZOLAM) [Concomitant]
  4. LIVALO (ITAVASTATIN CALCIUM) [Concomitant]
  5. AMLODIN OD (AMLODIPINE BESILATE) [Concomitant]
  6. FLUVOXAMINE MALEATE [Concomitant]
  7. SEDIEL (TANDOSPIRONE CITRATE) [Concomitant]
  8. LENDORM [Concomitant]
  9. BIOFERMIN (BIOFERMIN) [Concomitant]

REACTIONS (2)
  - DRUG INTERACTION [None]
  - HAEMORRHAGE SUBCUTANEOUS [None]
